FAERS Safety Report 9263714 (Version 1)
Quarter: 2013Q2

REPORT INFORMATION
  Report Type: Spontaneous
  Country: US (occurrence: None)
  Receive Date: 20130429
  Receipt Date: 20130429
  Transmission Date: 20140414
  Serious: Yes (Life-Threatening, Disabling)
  Sender: FDA-Public Use
  Company Number: None

PATIENT
  Age: 65 Year
  Sex: Female
  Weight: 68.04 kg

DRUGS (1)
  1. LOSARTAN [Suspect]
     Indication: HYPERTENSION
     Dosage: 1 TAB
     Route: 048
     Dates: start: 20120601, end: 20130414

REACTIONS (4)
  - Heart rate increased [None]
  - Pain in extremity [None]
  - Insomnia [None]
  - Depression [None]
